FAERS Safety Report 20176383 (Version 2)
Quarter: 2022Q1

REPORT INFORMATION
  Report Type: Spontaneous
  Country: JP (occurrence: JP)
  Receive Date: 20211213
  Receipt Date: 20220210
  Transmission Date: 20220423
  Serious: Yes (Life-Threatening)
  Sender: FDA-Public Use
  Company Number: JP-CELGENE-JPN-20211107796

PATIENT
  Age: 79 Year
  Sex: Male

DRUGS (3)
  1. VIDAZA [Suspect]
     Active Substance: AZACITIDINE
     Indication: Myelodysplastic syndrome
     Dosage: 130 MILLIGRAM
     Route: 041
     Dates: start: 20210824, end: 2021
  2. VIDAZA [Suspect]
     Active Substance: AZACITIDINE
     Dosage: 65 MILLIGRAM
     Route: 041
     Dates: start: 20211004, end: 20211009
  3. VIDAZA [Suspect]
     Active Substance: AZACITIDINE
     Dosage: 40 MILLIGRAM
     Route: 041
     Dates: start: 20211129, end: 20211204

REACTIONS (1)
  - Neutrophil count decreased [Not Recovered/Not Resolved]

NARRATIVE: CASE EVENT DATE: 20210101
